FAERS Safety Report 19193211 (Version 1)
Quarter: 2021Q2

REPORT INFORMATION
  Report Type: Spontaneous
  Country: CN (occurrence: CN)
  Receive Date: 20210428
  Receipt Date: 20210428
  Transmission Date: 20210717
  Serious: Yes (Other)
  Sender: FDA-Public Use
  Company Number: CN-ASTRAZENECA-2021A348832

PATIENT
  Age: 18628 Day
  Sex: Male
  Weight: 65 kg

DRUGS (1)
  1. LOSEC [Suspect]
     Active Substance: OMEPRAZOLE
     Indication: GASTRITIS EROSIVE
     Route: 048
     Dates: start: 20210418, end: 20210418

REACTIONS (4)
  - Conjunctival oedema [Recovered/Resolved]
  - Rash erythematous [Recovered/Resolved]
  - Pruritus [Recovered/Resolved]
  - Conjunctival hyperaemia [Recovered/Resolved]

NARRATIVE: CASE EVENT DATE: 20210418
